FAERS Safety Report 8961881 (Version 1)
Quarter: 2012Q4

REPORT INFORMATION
  Report Type: 
  Country: DE (occurrence: DE)
  Receive Date: 20121212
  Receipt Date: 20121212
  Transmission Date: 20130627
  Serious: Yes (Other)
  Sender: FDA-Public Use
  Company Number: GXKR2012DE003799

PATIENT
  Age: 65 Year
  Sex: Female
  Weight: 63 kg

DRUGS (1)
  1. EPIRUBICIN [Suspect]
     Indication: BREAST CANCER FEMALE
     Route: 042

REACTIONS (4)
  - Blood pressure increased [Recovered/Resolved]
  - Headache [Recovering/Resolving]
  - Respiratory distress [Recovered/Resolved]
  - Erythema [Recovered/Resolved]
